FAERS Safety Report 5043639-5 (Version None)
Quarter: 2006Q2

REPORT INFORMATION
  Report Type: 
  Country: None (occurrence: None)
  Receive Date: 20060601
  Receipt Date: 20060127
  Transmission Date: 20061013
  Serious: No
  Sender: FDA-Public Use
  Company Number: 2006PV007790

PATIENT
  Age: 58 Year
  Sex: Male
  Weight: 85.2762 kg

DRUGS (6)
  1. BYETTA [Suspect]
     Indication: DIABETES MELLITUS NON-INSULIN-DEPENDENT
     Dosage: SEE IMAGE
     Route: 058
     Dates: start: 20060104, end: 20060110
  2. BYETTA [Suspect]
     Indication: DIABETES MELLITUS NON-INSULIN-DEPENDENT
     Dosage: SEE IMAGE
     Route: 058
     Dates: start: 20060111
  3. ALTACE [Concomitant]
  4. AVANDIA [Concomitant]
  5. GLYBURIDE [Concomitant]
  6. PRECOSE [Concomitant]

REACTIONS (1)
  - HYPERTENSION [None]
